FAERS Safety Report 7559611-7 (Version None)
Quarter: 2011Q2

REPORT INFORMATION
  Report Type: 
  Country: None (occurrence: None)
  Receive Date: 20110606
  Receipt Date: 20110509
  Transmission Date: 20111010
  Serious: Yes (Death)
  Sender: FDA-Public Use
  Company Number: OMX-2011-00015

PATIENT
  Sex: Female

DRUGS (2)
  1. APPLICATOR [Concomitant]
  2. QUIXIL (HUMAN THROMBIN, HUMAN CLOTTABLE PROTEIN) (SPRAY (NOT INHALATIO [Suspect]
     Indication: KNEE ARTHROPLASTY
     Dates: start: 20110301, end: 20110301

REACTIONS (1)
  - PULMONARY EMBOLISM [None]
